FAERS Safety Report 10041992 (Version 1)
Quarter: 2014Q1

REPORT INFORMATION
  Report Type: Spontaneous
  Country: NO (occurrence: NO)
  Receive Date: 20140327
  Receipt Date: 20140327
  Transmission Date: 20141002
  Serious: Yes (Other)
  Sender: FDA-Public Use
  Company Number: NO-JNJFOC-20140311991

PATIENT
  Sex: 0

DRUGS (15)
  1. TOPIRAMATE [Suspect]
     Indication: EPILEPSY
     Route: 064
  2. LAMOTRIGINE [Suspect]
     Indication: EPILEPSY
     Route: 064
  3. CARBAMAZEPINE [Suspect]
     Indication: EPILEPSY
     Route: 064
  4. LEVETIRACETAM [Suspect]
     Indication: EPILEPSY
     Route: 064
  5. CLONAZEPAM [Suspect]
     Indication: EPILEPSY
     Route: 064
  6. OXCARBAZEPINE [Suspect]
     Indication: EPILEPSY
     Route: 064
  7. PHENOBARBITAL [Suspect]
     Indication: EPILEPSY
     Route: 064
  8. GABAPENTIN [Suspect]
     Indication: EPILEPSY
     Route: 064
  9. PHENYTOIN [Suspect]
     Indication: EPILEPSY
     Route: 064
  10. PREGABALIN [Suspect]
     Indication: EPILEPSY
     Route: 064
  11. VIGABATRIN [Suspect]
     Indication: EPILEPSY
     Route: 064
  12. ETHOSUXIMIDE [Suspect]
     Indication: EPILEPSY
     Route: 064
  13. PRIMIDONE [Suspect]
     Indication: EPILEPSY
     Route: 064
  14. CLOBAZAM [Suspect]
     Indication: EPILEPSY
     Route: 064
  15. VALPROATE NOS [Suspect]
     Indication: EPILEPSY
     Route: 064

REACTIONS (12)
  - Congenital anomaly [Unknown]
  - Limb reduction defect [Unknown]
  - Trisomy 21 [Unknown]
  - Low birth weight baby [Unknown]
  - Foetal growth restriction [Unknown]
  - Spina bifida [Unknown]
  - Klinefelter^s syndrome [Unknown]
  - Congenital cystic kidney disease [Unknown]
  - Multiple congenital abnormalities [Unknown]
  - Ultrasound antenatal screen [Unknown]
  - Foetal exposure during pregnancy [Recovered/Resolved]
  - Microencephaly [Unknown]
